FAERS Safety Report 11433483 (Version 1)
Quarter: 2015Q3

REPORT INFORMATION
  Report Type: Spontaneous
  Country: GB (occurrence: None)
  Receive Date: 20150827
  Receipt Date: 20150827
  Transmission Date: 20151125
  Serious: Yes (Other)
  Sender: FDA-Public Use
  Company Number: GB-000054

PATIENT
  Age: 45 Year
  Sex: Female
  Weight: 167 kg

DRUGS (10)
  1. CALCICHEW D3 FORTE [Suspect]
     Active Substance: CALCIUM\CHOLECALCIFEROL
  2. BUDESONIDE. [Concomitant]
     Active Substance: BUDESONIDE
  3. LORATADINE. [Concomitant]
     Active Substance: LORATADINE
  4. LACTULOSE. [Concomitant]
     Active Substance: LACTULOSE
  5. QUININE SULPHATE [Concomitant]
     Active Substance: QUININE SULFATE
  6. MERCAPTOPURINE (MERCAPTOPURINE) [Suspect]
     Active Substance: MERCAPTOPURINE
     Indication: CROHN^S DISEASE
     Route: 048
     Dates: start: 20150723
  7. RISEDRONATE [Suspect]
     Active Substance: RISEDRONATE SODIUM
  8. INFLIXIMAB [Concomitant]
     Active Substance: INFLIXIMAB
  9. FLUOXETINE [Concomitant]
     Active Substance: FLUOXETINE\FLUOXETINE HYDROCHLORIDE
  10. SYTRON [Concomitant]

REACTIONS (10)
  - Diarrhoea [None]
  - Mouth ulceration [None]
  - Pharyngeal ulceration [None]
  - Swollen tongue [None]
  - Breast abscess [None]
  - Breast discomfort [None]
  - Oropharyngeal swelling [None]
  - Rash [None]
  - Off label use [None]
  - Discomfort [None]
